FAERS Safety Report 8607577-0 (Version None)
Quarter: 2012Q3

REPORT INFORMATION
  Report Type: 
  Country: None (occurrence: None)
  Receive Date: 20120821
  Receipt Date: 20120810
  Transmission Date: 20120928
  Serious: Yes (Hospitalization)
  Sender: FDA-Public Use
  Company Number: US-BAYER-US-2006-025028

PATIENT
  Age: 33 Year
  Sex: Female
  Weight: 52.2 kg

DRUGS (1)
  1. YASMIN [Suspect]
     Indication: CONTRACEPTION
     Dosage: 1 TAB(S), 1X/DAY [DAILY DOSE: 1 TAB(S)] [TOTAL DOSE: 365 TAB(S)]
     Route: 048
     Dates: start: 20050101, end: 20060826

REACTIONS (4)
  - PULMONARY EMBOLISM [None]
  - MUSCULOSKELETAL PAIN [None]
  - DYSPNOEA [None]
  - CHEST PAIN [None]
